FAERS Safety Report 5542041-7 (Version None)
Quarter: 2007Q4

REPORT INFORMATION
  Report Type: 
  Country: None (occurrence: None)
  Receive Date: 20071210
  Receipt Date: 20071205
  Transmission Date: 20080405
  Serious: Yes (Hospitalization)
  Sender: FDA-Public Use
  Company Number: PHNR2007AU02161

PATIENT
  Age: 38 Year
  Sex: Female

DRUGS (2)
  1. EXJADE [Suspect]
     Indication: THALASSAEMIA
     Dosage: 1000MG DAILY
     Route: 048
     Dates: start: 20061111, end: 20061120
  2. MAGMIN [Concomitant]
     Dosage: UNK, QID
     Route: 048

REACTIONS (3)
  - DYSPNOEA [None]
  - PRURITUS [None]
  - VASCULITIC RASH [None]
